FAERS Safety Report 4816413-X (Version None)
Quarter: 2005Q4

REPORT INFORMATION
  Report Type: 
  Country: None (occurrence: None)
  Receive Date: 20051028
  Receipt Date: 20051021
  Transmission Date: 20060501
  Serious: Yes (Hospitalization, Other)
  Sender: FDA-Public Use
  Company Number: HQWYE156021OCT05

PATIENT
  Age: 79 Year
  Sex: Female

DRUGS (12)
  1. PANTOPRAZOLE SODIUM [Suspect]
     Dosage: 1  DOSAGE FORM 1X PER 1 DAY,
     Route: 048
     Dates: start: 20050806, end: 20050809
  2. AUGMENTIN '125' [Suspect]
     Indication: LUNG DISORDER
     Dosage: 1 G 3X PER 1 DAY,
     Route: 048
     Dates: start: 20050801, end: 20050801
  3. LOVENOX [Suspect]
     Indication: THROMBOSIS PROPHYLAXIS
     Dosage: 1 DOSAGE FORM 1X PER 1 DAY, SC
     Route: 058
     Dates: start: 20050801, end: 20050809
  4. PAROXETINE HCL [Concomitant]
  5. PREDNISONE [Concomitant]
  6. METHOTREXATE                 (METOTHREXATE) [Concomitant]
  7. ATACAND [Concomitant]
  8. LORAZEPAM [Concomitant]
  9. ALLOPURINOL [Concomitant]
  10. NOCTRAN  10  (ACEPROMAZINE/CLORAZEPATE DIPORASSIUM) [Concomitant]
  11. DOLIPRANE             (PARACETAMOL) [Concomitant]
  12. SOTALOL [Concomitant]

REACTIONS (4)
  - DYSPNOEA [None]
  - FALL [None]
  - HAEMATOMA [None]
  - THROMBOCYTOPENIA [None]
